FAERS Safety Report 7757115-X (Version None)
Quarter: 2011Q3

REPORT INFORMATION
  Report Type: 
  Country: None (occurrence: None)
  Receive Date: 20110916
  Receipt Date: 20110912
  Transmission Date: 20111222
  Serious: Yes (Life-Threatening)
  Sender: FDA-Public Use
  Company Number: DE-MERCK-1109DEU00045

PATIENT
  Age: 11 Year
  Sex: Male

DRUGS (1)
  1. SINGULAIR [Suspect]
     Indication: ASTHMA
     Route: 048
     Dates: start: 20110401, end: 20110501

REACTIONS (4)
  - SUICIDAL IDEATION [None]
  - HALLUCINATION, VISUAL [None]
  - INITIAL INSOMNIA [None]
  - MIDDLE INSOMNIA [None]
